FAERS Safety Report 26146292 (Version 1)
Quarter: 2025Q4

REPORT INFORMATION
  Report Type: Spontaneous
  Country: US (occurrence: None)
  Receive Date: 20251211
  Receipt Date: 20251211
  Transmission Date: 20260118
  Serious: Yes (Hospitalization)
  Sender: FDA-CTU
  Company Number: None

PATIENT
  Sex: Male

DRUGS (11)
  1. VYNDAMAX [Suspect]
     Active Substance: TAFAMIDIS
     Indication: Cardiomyopathy
     Dosage: FREQUENCY : DAILY;
     Route: 048
     Dates: start: 20230209
  2. ASPIRIN CHW 81MG [Concomitant]
  3. ELIQUIS [Concomitant]
     Active Substance: APIXABAN
  4. ENTRESTO [Concomitant]
     Active Substance: SACUBITRIL\VALSARTAN
  5. EYE DROPS DRO [Concomitant]
  6. EYE DROPS AR SOL OP [Concomitant]
  7. GLIPIZIDE ER TAB 2.5MG [Concomitant]
  8. JARDIANCE [Concomitant]
     Active Substance: EMPAGLIFLOZIN
  9. LASIX TAB 20MG [Concomitant]
  10. LIPITOR TAB 40MG [Concomitant]
  11. METOPROLTARTAB100MG [Concomitant]

REACTIONS (1)
  - Infection [None]
